FAERS Safety Report 5494769-5 (Version None)
Quarter: 2007Q4

REPORT INFORMATION
  Report Type: 
  Country: None (occurrence: None)
  Receive Date: 20071015
  Receipt Date: 20070821
  Transmission Date: 20080405
  Serious: No
  Sender: FDA-Public Use
  Company Number: 2007SP002930

PATIENT
  Age: 80 Year
  Sex: Female

DRUGS (6)
  1. LUNESTA [Suspect]
     Indication: SLEEP DISORDER
     Dosage: 2 MG ORAL; 3 MG ORAL; 3 MG ORAL
     Route: 048
     Dates: start: 20060401
  2. FOSAMAX [Concomitant]
  3. SYNTHROID [Concomitant]
  4. ZOLOFT [Concomitant]
  5. TEMAZEPAM [Concomitant]
  6. AMBIEN [Concomitant]

REACTIONS (1)
  - DYSGEUSIA [None]
